FAERS Safety Report 13563753 (Version 2)
Quarter: 2017Q2

REPORT INFORMATION
  Report Type: Report from Study
  Country: KR (occurrence: KR)
  Receive Date: 20170519
  Receipt Date: 20170606
  Transmission Date: 20170830
  Serious: Yes (Hospitalization)
  Sender: FDA-Public Use
  Company Number: KR-B.I. PHARMACEUTICALS,INC./RIDGEFIELD-2017-BI-027101

PATIENT
  Age: 71 Year
  Sex: Male
  Weight: 70 kg

DRUGS (8)
  1. GILOTRIF [Suspect]
     Active Substance: AFATINIB
     Indication: NON-SMALL CELL LUNG CANCER
     Route: 048
     Dates: start: 20161128, end: 20170508
  2. CODEINE [Concomitant]
     Active Substance: CODEINE
     Indication: PNEUMONIA
     Route: 065
     Dates: start: 20161116
  3. MEGEIS F PACK [Concomitant]
     Indication: DYSPEPSIA
     Route: 065
     Dates: start: 20161214
  4. CODEINE [Concomitant]
     Active Substance: CODEINE
     Indication: COUGH
  5. VAHELVA RESPIMAT [Concomitant]
     Indication: DRUG THERAPY
     Dosage: STRENGTH- 24.76+28.27MG
     Route: 065
     Dates: start: 20161128
  6. LEVOTUSS [Concomitant]
     Active Substance: LEVODROPROPIZINE
     Indication: COUGH
  7. LEVOTUSS [Concomitant]
     Active Substance: LEVODROPROPIZINE
     Indication: PNEUMONIA
     Route: 065
     Dates: start: 20161116
  8. CEFECIN [Concomitant]
     Indication: PNEUMONIA
     Route: 065
     Dates: start: 20161116

REACTIONS (1)
  - Pneumonia [Not Recovered/Not Resolved]

NARRATIVE: CASE EVENT DATE: 20170504
